FAERS Safety Report 18751211 (Version 2)
Quarter: 2021Q2

REPORT INFORMATION
  Report Type: Other
  Country: IT (occurrence: IT)
  Receive Date: 20210118
  Receipt Date: 20210628
  Transmission Date: 20210717
  Serious: No
  Sender: FDA-Public Use
  Company Number: IT-ROCHE-2747421

PATIENT
  Age: 39 Year
  Sex: Male
  Weight: 58 kg

DRUGS (5)
  1. ACETAMINOPHEN. [Concomitant]
     Active Substance: ACETAMINOPHEN
     Route: 048
     Dates: start: 20210120, end: 20210120
  2. METILPREDNISOLONE [Concomitant]
     Active Substance: METHYLPREDNISOLONE
     Indication: PREMEDICATION
     Dosage: ONCE BEFORE INFUSION?DATE OF TREATMENT: 20/JAN/2021
     Route: 042
     Dates: start: 20201214, end: 20201214
  3. ACETAMOL [Concomitant]
     Active Substance: ACETAMINOPHEN
     Indication: PREMEDICATION
     Dosage: ONCE BEFORE INFUSION
     Route: 048
     Dates: start: 20201214, end: 20201214
  4. TRIMETON [Concomitant]
     Active Substance: CHLORPHENIRAMINE MALEATE
     Indication: PREMEDICATION
     Dosage: ONCE BEFORE INFUSION?DATE OF TREATMENT: 20/JAN/2021
     Route: 030
     Dates: start: 20201214, end: 20201214
  5. OCRELIZUMAB. [Suspect]
     Active Substance: OCRELIZUMAB
     Indication: PRIMARY PROGRESSIVE MULTIPLE SCLEROSIS
     Dosage: DATE OF TREATMENT : 20/JAN/2021
     Route: 042
     Dates: start: 20201214, end: 20201214

REACTIONS (1)
  - SARS-CoV-2 test positive [Recovered/Resolved]

NARRATIVE: CASE EVENT DATE: 20201224
